FAERS Safety Report 10243002 (Version 1)
Quarter: 2014Q2

REPORT INFORMATION
  Report Type: Spontaneous
  Country: US (occurrence: US)
  Receive Date: 20140618
  Receipt Date: 20140618
  Transmission Date: 20141212
  Serious: Yes (Hospitalization)
  Sender: FDA-Public Use
  Company Number: US-BEH-2014043153

PATIENT
  Sex: Female
  Weight: 147 kg

DRUGS (31)
  1. ZEMAIRA [Suspect]
     Indication: ALPHA-1 ANTI-TRYPSIN DEFICIENCY
     Route: 042
     Dates: start: 20140605, end: 20140606
  2. LASIX [Concomitant]
  3. POTASSIUM CL ER [Concomitant]
  4. OXYGEN [Concomitant]
  5. FLUTICASONE PROP [Concomitant]
  6. PROMETHAZINE [Concomitant]
  7. ALBUTEROL [Concomitant]
     Route: 055
  8. LMX [Concomitant]
  9. PROAIR HFA [Concomitant]
     Route: 055
  10. TORSEMIDE [Concomitant]
  11. TRAMADOL HCL [Concomitant]
  12. FLUOXETINE HCL [Concomitant]
  13. HYDROCODON-ACETAMINOPHEN [Concomitant]
     Dosage: 10-325
  14. DOCUSATE SODIUM [Concomitant]
  15. BENZONATATE [Concomitant]
  16. GUAIFENESIN [Concomitant]
  17. RISPERDAL [Concomitant]
  18. DEXILANT DR (DEXLANSOPRAZOLE) [Concomitant]
  19. BYSTOLIC [Concomitant]
  20. POTASSIUM CL ER [Concomitant]
  21. PROMETHAZINE CODEINE [Concomitant]
  22. PROZAC [Concomitant]
  23. BUTALB ACETAMIN CAFF [Concomitant]
     Dosage: 50-325-40
  24. ADVAIR [Concomitant]
     Dosage: 500-50 DISKUS
  25. TIZANIDINE HCL [Concomitant]
  26. ONDANSETRON ODT [Concomitant]
  27. SPIRIVA [Concomitant]
  28. ACETAMINOPHEN [Concomitant]
  29. DIPHENHYDRAMINE [Concomitant]
  30. HEPARIN [Concomitant]
     Dosage: 10 UNITS/ML
  31. LMX [Concomitant]

REACTIONS (2)
  - Swelling [Unknown]
  - Migraine [Unknown]
